FAERS Safety Report 17927810 (Version 2)
Quarter: 2021Q1

REPORT INFORMATION
  Report Type: Report from Study
  Country: US (occurrence: US)
  Receive Date: 20200622
  Receipt Date: 20210309
  Transmission Date: 20210419
  Serious: No
  Sender: FDA-Public Use
  Company Number: NVSC2020US174962

PATIENT
  Age: 68 Year
  Sex: Male

DRUGS (2)
  1. ENTRESTO [Suspect]
     Active Substance: SACUBITRIL\VALSARTAN
     Dosage: 12.13 MG, BID
     Route: 048
  2. ENTRESTO [Suspect]
     Active Substance: SACUBITRIL\VALSARTAN
     Indication: CARDIAC FAILURE CONGESTIVE
     Dosage: 0.5 DF (24/26 MG), BID (HALF IN AM AND HALF IN PM)
     Route: 048
     Dates: start: 202001

REACTIONS (2)
  - Hypotension [Recovering/Resolving]
  - Wrong technique in product usage process [Unknown]

NARRATIVE: CASE EVENT DATE: 202001
